FAERS Safety Report 9067367 (Version 4)
Quarter: 2013Q2

REPORT INFORMATION
  Report Type: Spontaneous
  Country: US (occurrence: US)
  Receive Date: 20130206
  Receipt Date: 20130606
  Transmission Date: 20140414
  Serious: Yes (Hospitalization)
  Sender: FDA-Public Use
  Company Number: US-BAYER-2013-015843

PATIENT
  Age: 38 Year
  Sex: Female

DRUGS (3)
  1. YASMIN [Suspect]
  2. OCELLA [Suspect]
  3. MULTIVITAMINS [Concomitant]

REACTIONS (2)
  - Pulmonary embolism [None]
  - Deep vein thrombosis [None]
